FAERS Safety Report 10009852 (Version 1)
Quarter: 2014Q1

REPORT INFORMATION
  Report Type: Spontaneous
  Country: US (occurrence: US)
  Receive Date: 20140312
  Receipt Date: 20140312
  Transmission Date: 20141002
  Serious: No
  Sender: FDA-Public Use
  Company Number: US-INCYTE CORPORATION-2013IN000235

PATIENT
  Age: 55 Year
  Sex: Male

DRUGS (2)
  1. JAKAFI [Suspect]
     Dosage: 15 MG, BID
     Route: 048
     Dates: start: 20120404
  2. ASPIRIN [Concomitant]

REACTIONS (7)
  - Nasopharyngitis [Unknown]
  - Respiratory disorder [Unknown]
  - Chest pain [Unknown]
  - Cough [Unknown]
  - Migraine [Unknown]
  - White blood cell count decreased [Unknown]
  - Dizziness [Unknown]
